FAERS Safety Report 9175913 (Version 17)
Quarter: 2015Q2

REPORT INFORMATION
  Report Type: Report from Study
  Country: JP (occurrence: JP)
  Receive Date: 20130320
  Receipt Date: 20150626
  Transmission Date: 20150821
  Serious: Yes (Hospitalization, Other)
  Sender: FDA-Public Use
  Company Number: JP-UCBSA-081023

PATIENT
  Age: 59 Year
  Sex: Female
  Weight: 78.6 kg

DRUGS (5)
  1. CERTOLIZUMAB PEGOL RA [Suspect]
     Active Substance: CERTOLIZUMAB PEGOL
     Indication: RHEUMATOID ARTHRITIS
     Dosage: 200 MG, EV 2 WEEKS(QOW)
     Route: 058
     Dates: start: 20090803, end: 20130228
  2. LEVOTHYROXINE SODIUM HYDRATE [Concomitant]
     Indication: HYPOPARATHYROIDISM
     Dosage: 50 ?G, ONCE DAILY (QD)
     Route: 048
  3. METHOTREXATE [Concomitant]
     Active Substance: METHOTREXATE
     Indication: RHEUMATOID ARTHRITIS
     Dosage: 2 MG, ONCE DAILY (QD)
     Route: 048
  4. FOLIC ACID. [Concomitant]
     Active Substance: FOLIC ACID
     Indication: PROPHYLAXIS
     Dosage: 5 MG, WEEKLY (QW)
     Route: 048
  5. PITAVASTATIN CALCIUM [Concomitant]
     Active Substance: PITAVASTATIN CALCIUM
     Indication: HYPERCHOLESTEROLAEMIA
     Dosage: 2 MG, ONCE DAILY (QD)
     Route: 048

REACTIONS (2)
  - Breast cancer [Recovering/Resolving]
  - Thyroid cancer [Recovering/Resolving]

NARRATIVE: CASE EVENT DATE: 20130228
